FAERS Safety Report 6692163-2 (Version None)
Quarter: 2010Q2

REPORT INFORMATION
  Report Type: 
  Country: None (occurrence: None)
  Receive Date: 20100422
  Receipt Date: 20091005
  Transmission Date: 20101027
  Serious: No
  Sender: FDA-Public Use
  Company Number: US-ASTRAZENECA-2009SE18098

PATIENT
  Age: 29198 Day
  Sex: Female
  Weight: 56.7 kg

DRUGS (8)
  1. METOPROLOL SUCCINATE [Suspect]
     Dates: start: 20090901
  2. COUMADIN [Concomitant]
     Indication: CEREBROVASCULAR ACCIDENT
  3. METHOTREXATE [Concomitant]
     Indication: ARTHRITIS
  4. LIPITOR [Concomitant]
     Indication: BLOOD CHOLESTEROL
  5. FOLIC ACID [Concomitant]
  6. SYNTHROID [Concomitant]
     Indication: HYPOTHYROIDISM
  7. ACTONEL [Concomitant]
     Indication: OSTEOPOROSIS
  8. LISINOPRIL [Concomitant]
     Indication: HYPERTENSION

REACTIONS (1)
  - BLOOD PRESSURE FLUCTUATION [None]
